FAERS Safety Report 17351079 (Version 2)
Quarter: 2020Q1

REPORT INFORMATION
  Report Type: Report from Study
  Country: None (occurrence: AR)
  Receive Date: 20200130
  Receipt Date: 20200221
  Transmission Date: 20200409
  Serious: Yes (Other)
  Sender: FDA-Public Use
  Company Number: AR-ABBVIE-20K-007-3254117-00

PATIENT
  Age: 65 Year
  Sex: Male

DRUGS (1)
  1. HUMIRA [Suspect]
     Active Substance: ADALIMUMAB
     Indication: RHEUMATOID ARTHRITIS
     Route: 058
     Dates: start: 20151117

REACTIONS (4)
  - Staphylococcal infection [Unknown]
  - Joint injury [Unknown]
  - Bursitis [Not Recovered/Not Resolved]
  - Arthritis infective [Unknown]

NARRATIVE: CASE EVENT DATE: 201906
